FAERS Safety Report 6221509-4 (Version None)
Quarter: 2009Q2

REPORT INFORMATION
  Report Type: 
  Country: None (occurrence: None)
  Receive Date: 20090610
  Receipt Date: 20090602
  Transmission Date: 20091009
  Serious: Yes (Other)
  Sender: FDA-Public Use
  Company Number: PHEH2009US04848

PATIENT
  Sex: Female
  Weight: 111 kg

DRUGS (1)
  1. RECLAST [Suspect]
     Indication: OSTEOPOROSIS
     Dosage: 5 MG, ONCE/SINGLE
     Route: 042
     Dates: start: 20090428, end: 20090428

REACTIONS (3)
  - COUGH [None]
  - DYSPNOEA [None]
  - THROAT IRRITATION [None]
